FAERS Safety Report 19063442 (Version 1)
Quarter: 2021Q1

REPORT INFORMATION
  Report Type: Report from Study
  Country: IN (occurrence: IN)
  Receive Date: 20210326
  Receipt Date: 20210326
  Transmission Date: 20210420
  Serious: Yes (Congenital Anomaly, Other)
  Sender: FDA-Public Use
  Company Number: IN-ASTRAZENECA-2021A142251

PATIENT
  Weight: 2.7 kg

DRUGS (2)
  1. QUETIAPINE. [Suspect]
     Active Substance: QUETIAPINE
     Route: 064
  2. QUETIAPINE. [Suspect]
     Active Substance: QUETIAPINE
     Route: 063

REACTIONS (4)
  - Mental disorder [Unknown]
  - Exposure during pregnancy [Unknown]
  - Motor developmental delay [Unknown]
  - Exposure via breast milk [Unknown]
